FAERS Safety Report 12448629 (Version 2)
Quarter: 2016Q3

REPORT INFORMATION
  Report Type: Report from Study
  Country: ES (occurrence: ES)
  Receive Date: 20160608
  Receipt Date: 20160713
  Transmission Date: 20161109
  Serious: Yes (Other)
  Sender: FDA-Public Use
  Company Number: ES-JNJFOC-20160601695

PATIENT
  Age: 51 Year
  Sex: Male

DRUGS (1)
  1. SILTUXIMAB [Suspect]
     Active Substance: SILTUXIMAB
     Indication: CASTLEMAN^S DISEASE
     Route: 042
     Dates: end: 201604

REACTIONS (2)
  - Transaminases increased [Unknown]
  - Blood triglycerides increased [Unknown]
